FAERS Safety Report 5626597-1 (Version None)
Quarter: 2008Q1

REPORT INFORMATION
  Report Type: 
  Country: None (occurrence: None)
  Receive Date: 20080214
  Receipt Date: 20080205
  Transmission Date: 20080703
  Serious: Yes (Other)
  Sender: FDA-Public Use
  Company Number: BE-SANOFI-SYNTHELABO-F01200300922

PATIENT
  Sex: Female

DRUGS (12)
  1. ELOXATIN [Suspect]
     Indication: METASTASES TO LIVER
     Route: 042
     Dates: start: 20010305, end: 20010305
  2. EPREX [Concomitant]
     Dosage: 10.000 IU 3X/WEEK
     Route: 065
  3. MYOLASTAN [Concomitant]
     Dosage: UNK
     Route: 065
  4. FRAXIPARINE [Concomitant]
     Dosage: UNK
     Route: 065
  5. LITICAN [Concomitant]
     Dosage: UNK
     Route: 065
  6. NEUPOGEN [Concomitant]
     Dosage: 1 AMPOULE DAILY DURING 7 DAYS
     Route: 065
  7. DEXAMETHASONE TAB [Concomitant]
     Dosage: 1 CAPSULE AT 08:00 AND 20:00 DURING 48 HR OR 72 HR
     Route: 065
  8. PYRIDOXINE [Concomitant]
     Dosage: 1 UNIT
     Route: 065
  9. ZOFRAN [Concomitant]
     Dosage: 2 UNIT
     Route: 065
  10. FOLINIC ACID [Concomitant]
     Indication: CHEMOTHERAPY
     Dosage: 300 MG/M2  OVER 2 HOURS ON DAYS 1 AND 2
     Route: 042
     Dates: start: 20010301, end: 20010301
  11. MOTILIUM [Concomitant]
     Dosage: UNK
     Route: 065
  12. FLUOROURACIL [Suspect]
     Indication: COLORECTAL CANCER METASTATIC
     Dosage: 22 HOUR-CONTINUOUS INFUSION ON DAYS 1 AND 2
     Route: 042
     Dates: start: 20010301, end: 20010301

REACTIONS (4)
  - FOCAL NODULAR HYPERPLASIA [None]
  - HEPATIC FAILURE [None]
  - MALIGNANT NEOPLASM PROGRESSION [None]
  - PORTAL HYPERTENSION [None]
